FAERS Safety Report 6848280-7 (Version None)
Quarter: 2010Q3

REPORT INFORMATION
  Report Type: 
  Country: None (occurrence: None)
  Receive Date: 20100716
  Receipt Date: 20100706
  Transmission Date: 20110219
  Serious: Yes (Death, Hospitalization)
  Sender: FDA-Public Use
  Company Number: US-PFIZER INC-2010074076

PATIENT
  Sex: Female
  Weight: 81.646 kg

DRUGS (2)
  1. REVATIO [Suspect]
     Indication: SYSTEMIC SCLEROSIS
     Dosage: 20 MG, 3X/DAY
     Dates: start: 20081126, end: 20100318
  2. REVATIO [Suspect]
     Indication: PULMONARY FIBROSIS

REACTIONS (1)
  - PULMONARY FIBROSIS [None]
